FAERS Safety Report 18249908 (Version 1)
Quarter: 2020Q3

REPORT INFORMATION
  Report Type: Spontaneous
  Country: IL (occurrence: IL)
  Receive Date: 20200909
  Receipt Date: 20200909
  Transmission Date: 20201103
  Serious: Yes (Life-Threatening)
  Sender: FDA-Public Use
  Company Number: IL-AMERICAN REGENT INC-2020001850

PATIENT
  Age: 32 Year
  Sex: Female

DRUGS (1)
  1. FERINJECT [Suspect]
     Active Substance: FERRIC CARBOXYMALTOSE
     Indication: PRODUCT USED FOR UNKNOWN INDICATION
     Dosage: 1000 MILLIGRAM
     Route: 042
     Dates: start: 20200805

REACTIONS (6)
  - Dyspnoea [Recovering/Resolving]
  - Pruritus [Recovering/Resolving]
  - Ocular discomfort [Recovering/Resolving]
  - Paraesthesia oral [Recovering/Resolving]
  - Headache [Recovering/Resolving]
  - Paraesthesia [Recovering/Resolving]

NARRATIVE: CASE EVENT DATE: 20200805
